FAERS Safety Report 19412634 (Version 2)
Quarter: 2021Q3

REPORT INFORMATION
  Report Type: Other
  Country: CA (occurrence: GB)
  Receive Date: 20210614
  Receipt Date: 20210907
  Transmission Date: 20211014
  Serious: Yes (Other)
  Sender: FDA-Public Use
  Company Number: CA-ACCORD-227829

PATIENT
  Age: 63 Year
  Sex: Male
  Weight: 78 kg

DRUGS (3)
  1. PACLITAXEL/PACLITAXEL LIPOSOME [Suspect]
     Active Substance: PACLITAXEL
     Indication: ADENOCARCINOMA PANCREAS
     Dosage: LIQUID INTRAVENOUS
  2. ABRAXANE [Suspect]
     Active Substance: PACLITAXEL
     Indication: CUTANEOUS T-CELL LYMPHOMA
     Dosage: FOR INJECTABLE SUSPENSION, POWDER FOR SUSPENSION INTRAVENOUS
     Route: 065
  3. GEMCITABINE/GEMCITABINE HYDROCHLORIDE [Suspect]
     Active Substance: GEMCITABINE\GEMCITABINE HYDROCHLORIDE
     Indication: CUTANEOUS T-CELL LYMPHOMA
     Dosage: NOT SPECIFIED

REACTIONS (3)
  - Neuropathy peripheral [Not Recovered/Not Resolved]
  - Hypoaesthesia [Not Recovered/Not Resolved]
  - Off label use [Unknown]
